FAERS Safety Report 22836962 (Version 2)
Quarter: 2024Q2

REPORT INFORMATION
  Report Type: Other
  Country: US (occurrence: None)
  Receive Date: 20230818
  Receipt Date: 20240426
  Transmission Date: 20240716
  Serious: Yes (Hospitalization, Other)
  Sender: FDA-Public Use
  Company Number: US-ROCHE-3405148

PATIENT
  Age: 88 Year
  Sex: Female
  Weight: 52.664 kg

DRUGS (25)
  1. VENCLEXTA [Suspect]
     Active Substance: VENETOCLAX
     Indication: Mantle cell lymphoma
     Route: 048
     Dates: start: 20230628
  2. VENCLEXTA [Suspect]
     Active Substance: VENETOCLAX
     Dosage: 10 MG, 50 MG, 100 MG TABLET IN DOSE PACK.
     Route: 048
     Dates: start: 20230531, end: 20230627
  3. VENCLEXTA [Suspect]
     Active Substance: VENETOCLAX
     Dosage: START PER RAMP UP DOSING, TAKE 4 TABLET 400 MG ORAL DAILY
     Route: 048
  4. RITUXAN [Suspect]
     Active Substance: RITUXIMAB
     Indication: Mantle cell lymphoma
     Dosage: INFUSE 610MG INTRAVENOUSLY EVERY 3 WEEK(S)
     Route: 042
  5. RITUXAN [Suspect]
     Active Substance: RITUXIMAB
     Dosage: 6 CYCLES
     Route: 042
     Dates: start: 20190605, end: 20190917
  6. RITUXAN [Suspect]
     Active Substance: RITUXIMAB
     Route: 042
     Dates: start: 20191204, end: 20200129
  7. CYCLOPHOSPHAMIDE [Concomitant]
     Active Substance: CYCLOPHOSPHAMIDE
     Dosage: 6 CYCLES
     Dates: start: 20190605, end: 20190917
  8. DOXORUBICIN [Concomitant]
     Active Substance: DOXORUBICIN
     Dosage: 6 CYCLES
     Dates: start: 20190605, end: 20190917
  9. VINCRISTINE [Concomitant]
     Active Substance: VINCRISTINE
     Dosage: 6 CYCLES
     Dates: start: 20190605, end: 20190917
  10. PREDNISONE [Concomitant]
     Active Substance: PREDNISONE
     Dosage: 6 CYCLES
     Dates: start: 20190605, end: 20190917
  11. TRUXIMA [Concomitant]
     Active Substance: RITUXIMAB-ABBS
     Dates: start: 20191204, end: 20211229
  12. TRUXIMA [Concomitant]
     Active Substance: RITUXIMAB-ABBS
     Route: 042
     Dates: start: 20200325, end: 20211229
  13. ATORVASTATIN [Concomitant]
     Active Substance: ATORVASTATIN
     Dosage: TAKE 1 TABLET BY MOUTH AT BEDTIME.
     Route: 048
  14. FAMVIR [Concomitant]
     Active Substance: FAMCICLOVIR
     Route: 048
  15. FOLIC ACID [Concomitant]
     Active Substance: FOLIC ACID
     Route: 048
  16. LISINOPRIL [Concomitant]
     Active Substance: LISINOPRIL
     Dosage: TAKE 1 TABLET BY MOUTH ONCE DAILY
     Route: 048
  17. VITAMIN B12 [Concomitant]
     Active Substance: CYANOCOBALAMIN
     Dosage: 1 PO DAILY
     Route: 048
  18. METOPROLOL [Concomitant]
     Active Substance: METOPROLOL
     Dosage: TALE 1/2 TAB BY MOUTH TWICE DAILY
     Route: 048
  19. ZOFRAN [Concomitant]
     Active Substance: ONDANSETRON HYDROCHLORIDE
     Indication: Nausea
     Dosage: DISSOLVE 1 TABLET BY MOUTH EVERY 8 HOUR AS NEEDED
     Route: 048
  20. ZOFRAN [Concomitant]
     Active Substance: ONDANSETRON HYDROCHLORIDE
     Indication: Vomiting
  21. POTASSIUM CHLORIDE [Concomitant]
     Active Substance: POTASSIUM CHLORIDE
     Route: 048
  22. PROMETHAZINE [Concomitant]
     Active Substance: PROMETHAZINE HYDROCHLORIDE
     Indication: Nausea
     Dosage: TAKE 1 TABLET EVERY 3-4 HOUR AS NEEDED
     Route: 048
  23. PROMETHAZINE [Concomitant]
     Active Substance: PROMETHAZINE HYDROCHLORIDE
     Indication: Vomiting
  24. IMBRUVICA [Concomitant]
     Active Substance: IBRUTINIB
     Route: 048
     Dates: start: 20230503
  25. IMBRUVICA [Concomitant]
     Active Substance: IBRUTINIB
     Route: 048

REACTIONS (15)
  - Cardiac failure congestive [Unknown]
  - Abdominal hernia [Unknown]
  - Diarrhoea [Unknown]
  - Arteriosclerosis coronary artery [Unknown]
  - Hypocalcaemia [Unknown]
  - Rectal prolapse [Unknown]
  - Dyspnoea [Unknown]
  - Hypertension [Unknown]
  - Amnesia [Unknown]
  - Cystocele [Unknown]
  - Peripheral swelling [Unknown]
  - Dysuria [Unknown]
  - Macular degeneration [Unknown]
  - Escherichia infection [Unknown]
  - Urinary tract infection [Unknown]
